FAERS Safety Report 16044131 (Version 4)
Quarter: 2019Q1

REPORT INFORMATION
  Report Type: Spontaneous
  Country: US (occurrence: US)
  Receive Date: 20190306
  Receipt Date: 20190315
  Transmission Date: 20190418
  Serious: Yes (Other)
  Sender: FDA-Public Use
  Company Number: US-PFIZER INC-2019097044

PATIENT
  Age: 56 Year
  Sex: Female

DRUGS (2)
  1. PACLITAXEL. [Suspect]
     Active Substance: PACLITAXEL
     Indication: OVARIAN CANCER STAGE III
     Dosage: UNK, CYCLIC (THREE CYCLES OF INTRAVENOUS/INTRAPERITONEAL CARBOPLATINUM AND PACLITAXEL)
     Route: 033
  2. CARBOPLATIN. [Suspect]
     Active Substance: CARBOPLATIN
     Indication: OVARIAN CANCER STAGE III
     Dosage: UNK, CYCLIC (THREE CYCLES OF INTRAVENOUS/INTRAPERITONEAL CARBOPLATINUM AND PACLITAXEL)
     Route: 033

REACTIONS (1)
  - Toxicity to various agents [Unknown]
